FAERS Safety Report 8861349 (Version 1)
Quarter: 2012Q4

REPORT INFORMATION
  Report Type: 
  Country: IT (occurrence: IT)
  Receive Date: 20121026
  Receipt Date: 20121026
  Transmission Date: 20130627
  Serious: Yes (Hospitalization)
  Sender: FDA-Public Use
  Company Number: IT-ACCORD-015025

PATIENT
  Age: 77 Year
  Sex: Female

DRUGS (9)
  1. PRILACE [Concomitant]
     Dosage: ramipril 5 mg, piretanide 6 mg
     Route: 048
  2. VENLAFAXINE [Concomitant]
     Route: 048
  3. LANSOPRAZOLE [Concomitant]
     Route: 048
  4. ALPRAZOLAM [Concomitant]
     Route: 048
  5. OXYCONTIN [Concomitant]
     Dosage: Strength 5 mg
     Route: 048
  6. GEMCITABINE [Suspect]
     Indication: OVARIAN CANCER STAGE I
     Dosage: cyclic
     Route: 042
     Dates: start: 20120831, end: 20120907
  7. DELTACORTENE [Concomitant]
     Route: 048
  8. ALLOPURINOL [Concomitant]
     Route: 048
  9. PYRIDOXINE [Concomitant]
     Route: 048

REACTIONS (2)
  - Angina pectoris [Recovered/Resolved]
  - Off label use [Unknown]
